FAERS Safety Report 6874611-8 (Version None)
Quarter: 2010Q3

REPORT INFORMATION
  Report Type: 
  Country: None (occurrence: None)
  Receive Date: 20100722
  Receipt Date: 20100712
  Transmission Date: 20110219
  Serious: Yes (Hospitalization)
  Sender: FDA-Public Use
  Company Number: 015714

PATIENT
  Sex: Male

DRUGS (7)
  1. CERTOLIZUMAB PEGOL (CERTOLIZUMAB PEFOL) [Suspect]
     Indication: RHEUMATOID ARTHRITIS
     Dosage: (SUBCUTANEOUS)
     Route: 058
     Dates: start: 20100304
  2. METHOTREXATE [Concomitant]
  3. LANSOPRAZOLE [Concomitant]
  4. AMLODIPINE BESYLATE [Concomitant]
  5. CANDESARTAN CILEXETIL [Concomitant]
  6. RISEDRONATE SODIUM [Concomitant]
  7. MELOXICAM [Concomitant]

REACTIONS (1)
  - NASOPHARYNGITIS [None]
